FAERS Safety Report 24019879 (Version 1)
Quarter: 2024Q2

REPORT INFORMATION
  Report Type: Spontaneous
  Country: US (occurrence: US)
  Receive Date: 20240627
  Receipt Date: 20240627
  Transmission Date: 20240716
  Serious: No
  Sender: FDA-Public Use
  Company Number: US-GALDERMA-US2024009485

PATIENT

DRUGS (2)
  1. DIFFERIN GEL [Suspect]
     Active Substance: ADAPALENE
     Indication: Skin wrinkling
     Dosage: 1 DOSAGE FORM, 0.1%, QD, APPLIED TOPICALLY BEFORE BEDTIME
     Route: 061
  2. DIFFERIN GEL [Suspect]
     Active Substance: ADAPALENE
     Dosage: 1 DOSAGE FORM, 0.1%, QD, APPLIED TOPICALLY BEFORE BEDTIME
     Route: 061
     Dates: start: 202312

REACTIONS (2)
  - Acne [Not Recovered/Not Resolved]
  - Intentional product use issue [Recovered/Resolved]

NARRATIVE: CASE EVENT DATE: 20231201
